FAERS Safety Report 4717043-0 (Version None)
Quarter: 2005Q3

REPORT INFORMATION
  Report Type: 
  Country: None (occurrence: None)
  Receive Date: 20050715
  Receipt Date: 20050706
  Transmission Date: 20060218
  Serious: Yes (Hospitalization)
  Sender: FDA-Public Use
  Company Number: 2005098078

PATIENT
  Sex: Male

DRUGS (1)
  1. LOPID [Suspect]
     Indication: HYPERTRIGLYCERIDAEMIA
     Dosage: 900 MG (900 MG, 1 IN 1 D), ORAL
     Route: 048

REACTIONS (1)
  - CEREBROVASCULAR ACCIDENT [None]
